FAERS Safety Report 16161441 (Version 1)
Quarter: 2019Q2

REPORT INFORMATION
  Report Type: Spontaneous
  Country: US (occurrence: US)
  Receive Date: 20190405
  Receipt Date: 20190405
  Transmission Date: 20190711
  Serious: No
  Sender: FDA-Public Use
  Company Number: US-TEVA-2019-US-1032358

PATIENT
  Sex: Female

DRUGS (1)
  1. QVAR REDIHALER [Suspect]
     Active Substance: BECLOMETHASONE DIPROPIONATE
     Indication: ASTHMA

REACTIONS (6)
  - Palpitations [Unknown]
  - Device issue [Unknown]
  - Product cleaning inadequate [Unknown]
  - Dyspnoea [Unknown]
  - Drug ineffective [Unknown]
  - Product residue present [Unknown]
